FAERS Safety Report 4463081-5 (Version None)
Quarter: 2004Q3

REPORT INFORMATION
  Report Type: 
  Country: None (occurrence: None)
  Receive Date: 20040928
  Receipt Date: 20040916
  Transmission Date: 20050211
  Serious: Yes (Hospitalization)
  Sender: FDA-Public Use
  Company Number: 209107

PATIENT
  Age: 57 Year
  Sex: Male

DRUGS (5)
  1. AVASTIN [Suspect]
     Indication: METASTATIC RENAL CELL CARCINOMA
     Dosage: 15 MG/KG, Q3W, INTRAVENOUS
     Route: 042
     Dates: start: 20040701
  2. DECADRON [Suspect]
     Indication: METASTASES TO BONE
     Dosage: ORAL
     Route: 048
  3. H2 BLOCKER NOS (HISTAMINE H2-RECEPTOR ANTAGONIST) [Concomitant]
  4. CARAFATE [Concomitant]
  5. FLUCONAZOLE [Concomitant]

REACTIONS (2)
  - ABDOMINAL PAIN [None]
  - GASTROINTESTINAL PERFORATION [None]
